FAERS Safety Report 7607668-7 (Version None)
Quarter: 2011Q3

REPORT INFORMATION
  Report Type: 
  Country: None (occurrence: None)
  Receive Date: 20110713
  Receipt Date: 20110422
  Transmission Date: 20111222
  Serious: Yes (Hospitalization)
  Sender: FDA-Public Use
  Company Number: PHHY2011JP35622

PATIENT
  Sex: Female

DRUGS (40)
  1. NEORAL [Suspect]
     Dosage: 200 MG,
     Route: 048
     Dates: start: 20100804, end: 20100824
  2. RINDERON -V [Concomitant]
     Indication: GRAFT VERSUS HOST DISEASE
     Dates: start: 20090910
  3. PYDOXAL [Concomitant]
     Dosage: 30 MG,
     Route: 048
     Dates: start: 20100817
  4. JUVELA [Concomitant]
     Indication: PROPHYLAXIS
     Dosage: 150 MG,
     Route: 048
     Dates: start: 20100331
  5. NEORAL [Suspect]
     Dosage: 40 MG,
     Route: 048
     Dates: end: 20100330
  6. NEORAL [Suspect]
     Dosage: 150 MG,
     Route: 048
     Dates: start: 20100512, end: 20100518
  7. SULFAMETHOXAZOLE [Concomitant]
     Indication: INFECTION PROPHYLAXIS
     Dosage: 1 DF
     Route: 048
     Dates: start: 20090910, end: 20100329
  8. CIPROFLOXACIN HCL [Concomitant]
     Route: 048
     Dates: start: 20091205
  9. GLYCERIN [Concomitant]
     Dates: start: 20091227
  10. NEORAL [Suspect]
     Dosage: 200 MG,
     Route: 048
     Dates: start: 20100602, end: 20100101
  11. NEORAL [Suspect]
     Dosage: 20 MG,
     Route: 048
     Dates: start: 20100623, end: 20100630
  12. NEORAL [Suspect]
     Dosage: 100 MG,
     Route: 048
     Dates: start: 20100825, end: 20100910
  13. LASIX [Concomitant]
     Route: 048
     Dates: start: 20090910
  14. LAXOBERON [Concomitant]
     Indication: CONSTIPATION
     Route: 048
     Dates: start: 20090910
  15. RITUXAN [Concomitant]
     Indication: REFRACTORINESS TO PLATELET TRANSFUSION
     Dates: start: 20091127
  16. VFEND [Concomitant]
     Route: 048
     Dates: start: 20091226
  17. PYDOXAL [Concomitant]
     Indication: MYELODYSPLASTIC SYNDROME
     Dosage: 30 MG,
     Route: 048
     Dates: start: 20100331
  18. EXJADE [Suspect]
     Indication: IRON OVERLOAD
     Dosage: 1000 MG, DAILY
     Route: 048
     Dates: start: 20090910, end: 20100106
  19. MAGMITT [Concomitant]
     Indication: CONSTIPATION
     Dosage: 990 MG,
     Route: 048
  20. ASCORBIC ACID [Concomitant]
     Dosage: 1500 MG,
     Route: 048
     Dates: start: 20100817
  21. JUVELA NICOTINATE [Concomitant]
     Dosage: 600 MG,
     Route: 048
     Dates: start: 20100811, end: 20100817
  22. NEORAL [Suspect]
     Dosage: 40 MG,
     Route: 048
     Dates: start: 20100602, end: 20100615
  23. NEORAL [Suspect]
     Dosage: 60 MG,
     Route: 048
     Dates: start: 20100825
  24. DEPAS [Concomitant]
     Indication: INSOMNIA
     Route: 048
     Dates: start: 20090910
  25. FLUCONAZOLE [Concomitant]
     Indication: INFECTION PROPHYLAXIS
     Dosage: 200 MG,
     Route: 048
  26. CELESTAMINE TAB [Concomitant]
     Route: 048
     Dates: start: 20091128
  27. NEORAL [Suspect]
     Dosage: 20 MG,
     Route: 048
     Dates: start: 20100331, end: 20100406
  28. NEORAL [Suspect]
     Dosage: 100 MG,
     Route: 048
     Dates: start: 20100428, end: 20100511
  29. NEORAL [Suspect]
     Dosage: 40 MG,
     Route: 048
     Dates: start: 20100703, end: 20100720
  30. NEORAL [Suspect]
     Dosage: 100 MG,
     Route: 048
     Dates: start: 20100728, end: 20100803
  31. OMEPRAZOLE [Concomitant]
     Route: 048
     Dates: start: 20090910
  32. ASCORBIC ACID [Concomitant]
     Indication: MYELODYSPLASTIC SYNDROME
     Dosage: 1999.998 MG,
     Route: 048
     Dates: start: 20100310
  33. URSO 250 [Concomitant]
     Dosage: 600 MG,
     Route: 048
  34. GASMOTIN [Concomitant]
     Indication: GASTROINTESTINAL DISORDER
     Dosage: 15 MG,
     Route: 048
     Dates: start: 20100316
  35. MIYA-BM [Concomitant]
     Dosage: 3 G,
     Route: 048
  36. ZOVIRAX [Concomitant]
     Indication: ANTIVIRAL PROPHYLAXIS
     Dosage: 600 MG,
     Route: 048
     Dates: start: 20100811, end: 20100817
  37. NEORAL [Suspect]
     Dosage: 40 MG,
     Route: 048
     Dates: start: 20100428, end: 20100511
  38. NEORAL [Suspect]
     Dosage: 300 MG,
     Route: 048
     Dates: start: 20100519, end: 20100601
  39. PREDNISOLONE [Concomitant]
     Indication: MYELODYSPLASTIC SYNDROME
     Route: 048
     Dates: start: 20090910
  40. BENAMBAX [Concomitant]
     Indication: PROPHYLAXIS
     Dosage: 300 MG,
     Dates: start: 20100623, end: 20100818

REACTIONS (7)
  - BLOOD CREATININE INCREASED [None]
  - PANCYTOPENIA [None]
  - STOMATITIS [None]
  - RENAL IMPAIRMENT [None]
  - HAEMORRHOIDS [None]
  - BLOOD BILIRUBIN INCREASED [None]
  - PYREXIA [None]
